FAERS Safety Report 6348399-3 (Version None)
Quarter: 2009Q3

REPORT INFORMATION
  Report Type: 
  Country: None (occurrence: None)
  Receive Date: 20090911
  Receipt Date: 20090902
  Transmission Date: 20100115
  Serious: Yes (Hospitalization)
  Sender: FDA-Public Use
  Company Number: US-BIOGENIDEC-2009BI014309

PATIENT
  Age: 69 Year
  Sex: Female

DRUGS (29)
  1. TYSABRI [Suspect]
     Indication: MULTIPLE SCLEROSIS
     Route: 042
     Dates: start: 20061115, end: 20090302
  2. AMBIEN [Concomitant]
     Route: 048
  3. ASPIRIN [Concomitant]
     Route: 048
  4. CALCIUM WITH VITAMIN D [Concomitant]
     Route: 048
  5. CARAFATE [Concomitant]
     Route: 048
  6. COLACE [Concomitant]
     Route: 048
  7. DIAZEPAM [Concomitant]
     Route: 048
  8. K-DUR [Concomitant]
     Route: 048
  9. LEXAPRO [Concomitant]
     Route: 048
  10. LORCET-HD [Concomitant]
     Route: 048
  11. MAGNESIUM [Concomitant]
     Route: 048
  12. MIRALAX [Concomitant]
     Route: 048
  13. MIRAPEX [Concomitant]
     Route: 048
  14. M.V.I. [Concomitant]
     Route: 048
  15. NAMENDA [Concomitant]
     Route: 048
  16. NUVIGIL [Concomitant]
     Route: 048
  17. OXYCONTIN [Concomitant]
     Route: 048
  18. OXYGEN [Concomitant]
  19. PREMARIN [Concomitant]
     Route: 048
  20. PROMETRIUM [Concomitant]
     Route: 048
  21. PROTONIX [Concomitant]
     Route: 048
  22. REGLAN [Concomitant]
     Route: 048
  23. RYTHMOL [Concomitant]
     Route: 048
  24. SOMA [Concomitant]
     Route: 048
  25. SPIRIVA [Concomitant]
     Route: 055
  26. SPIRONOLACTONE [Concomitant]
     Route: 048
  27. STRATTERA [Concomitant]
     Route: 048
  28. SYNTHROID [Concomitant]
     Route: 048
  29. TORSEMIDE [Concomitant]
     Route: 048

REACTIONS (7)
  - BRONCHITIS [None]
  - CELLULITIS [None]
  - FALL [None]
  - IMPAIRED HEALING [None]
  - MULTIPLE SCLEROSIS [None]
  - MULTIPLE SCLEROSIS RELAPSE [None]
  - PNEUMONIA STAPHYLOCOCCAL [None]
